FAERS Safety Report 25851653 (Version 2)
Quarter: 2025Q4

REPORT INFORMATION
  Report Type: Spontaneous
  Country: RU (occurrence: RU)
  Receive Date: 20250926
  Receipt Date: 20251017
  Transmission Date: 20260117
  Serious: Yes (Other)
  Sender: RANBAXY
  Company Number: RU-SUN PHARMACEUTICAL INDUSTRIES INC-2025R1-528720

PATIENT
  Age: 17 Year

DRUGS (1)
  1. METHOTREXATE [Suspect]
     Active Substance: METHOTREXATE
     Indication: Osteosarcoma
     Dosage: 12 MILLIGRAM/SQ. METER
     Route: 065

REACTIONS (3)
  - Neurotoxicity [Unknown]
  - Hepatotoxicity [Unknown]
  - Anaemia [Unknown]
